FAERS Safety Report 10234041 (Version 1)
Quarter: 2014Q2

REPORT INFORMATION
  Report Type: Report from Study
  Country: US (occurrence: US)
  Receive Date: 20140612
  Receipt Date: 20140612
  Transmission Date: 20141212
  Serious: Yes (Other)
  Sender: FDA-Public Use
  Company Number: US-JNJFOC-20140602371

PATIENT
  Age: 69 Year
  Sex: Male

DRUGS (2)
  1. IMBRUVICA [Suspect]
     Indication: CHRONIC LYMPHOCYTIC LEUKAEMIA
     Route: 048
     Dates: start: 201404
  2. VITAMINS NOS [Concomitant]

REACTIONS (9)
  - Platelet count decreased [Recovering/Resolving]
  - Epistaxis [Recovered/Resolved]
  - Vomiting [Recovered/Resolved]
  - Diarrhoea [Recovered/Resolved]
  - Full blood count abnormal [Recovering/Resolving]
  - White blood cell count increased [Recovering/Resolving]
  - Petechiae [Recovered/Resolved]
  - Haematochezia [Recovered/Resolved]
  - Haemoglobin decreased [Unknown]
